FAERS Safety Report 12801786 (Version 1)
Quarter: 2016Q4

REPORT INFORMATION
  Report Type: Spontaneous
  Country: US (occurrence: US)
  Receive Date: 20161003
  Receipt Date: 20161003
  Transmission Date: 20170207
  Serious: No
  Sender: FDA-Public Use
  Company Number: US-PFIZER INC-2016451626

PATIENT

DRUGS (1)
  1. CALAN SR [Suspect]
     Active Substance: VERAPAMIL HYDROCHLORIDE
     Dosage: 240 MG, DAILY

REACTIONS (3)
  - Abnormal behaviour [Unknown]
  - Drug ineffective [Unknown]
  - Blood pressure fluctuation [Unknown]
